FAERS Safety Report 7482466-6 (Version None)
Quarter: 2011Q2

REPORT INFORMATION
  Report Type: 
  Country: None (occurrence: None)
  Receive Date: 20110516
  Receipt Date: 20110506
  Transmission Date: 20111010
  Serious: Yes (Hospitalization)
  Sender: FDA-Public Use
  Company Number: US-ASTRAZENECA-2011SE26994

PATIENT
  Age: 64 Year
  Sex: Female
  Weight: 59.9 kg

DRUGS (3)
  1. ZESTRIL [Suspect]
     Indication: HYPERTENSION
     Route: 048
     Dates: start: 20110322
  2. ASPIRIN [Concomitant]
     Route: 048
  3. ESTRACE [Concomitant]
     Dosage: BIWK
     Route: 061

REACTIONS (4)
  - ANXIETY [None]
  - SENSATION OF HEAVINESS [None]
  - WRONG TECHNIQUE IN DRUG USAGE PROCESS [None]
  - DIZZINESS [None]
